FAERS Safety Report 17766641 (Version 1)
Quarter: 2020Q2

REPORT INFORMATION
  Report Type: Spontaneous
  Country: DE (occurrence: DE)
  Receive Date: 20200511
  Receipt Date: 20200511
  Transmission Date: 20200714
  Serious: Yes (Hospitalization)
  Sender: FDA-Public Use
  Company Number: DE-BAUSCH-BL-2020-013275

PATIENT
  Age: 17 Year
  Sex: Female
  Weight: 43 kg

DRUGS (3)
  1. METFORMIN [Suspect]
     Active Substance: METFORMIN HYDROCHLORIDE
     Indication: MEDICATION ERROR
     Dosage: 10X1G
     Route: 048
     Dates: start: 20180712, end: 20180712
  2. PARACETAMOL [Concomitant]
     Active Substance: ACETAMINOPHEN
     Indication: MENSTRUAL DISCOMFORT
     Route: 048
  3. IBUPROFEN. [Concomitant]
     Active Substance: IBUPROFEN
     Indication: MENSTRUAL DISCOMFORT
     Route: 048

REACTIONS (1)
  - Medication error [Recovering/Resolving]

NARRATIVE: CASE EVENT DATE: 20180712
